FAERS Safety Report 12709112 (Version 1)
Quarter: 2016Q3

REPORT INFORMATION
  Report Type: Other
  Country: GB (occurrence: FR)
  Receive Date: 20160901
  Receipt Date: 20160901
  Transmission Date: 20161109
  Serious: Yes (Death)
  Sender: FDA-Public Use
  Company Number: FR-INTERNATIONAL MEDICATION SYSTEMS, LIMITED-1056968

PATIENT
  Age: 73 Year
  Sex: Female
  Weight: 86 kg

DRUGS (4)
  1. MEPROBAMATE. [Concomitant]
     Active Substance: MEPROBAMATE
  2. FENTANYL TRANSDERMAL SYSTEM [Suspect]
     Active Substance: FENTANYL
     Route: 003
  3. CLONAZEPAM. [Concomitant]
     Active Substance: CLONAZEPAM
  4. MORPHINE [Suspect]
     Active Substance: MORPHINE
     Indication: OVERDOSE

REACTIONS (5)
  - Cyanosis [None]
  - Overdose [Fatal]
  - Toxicity to various agents [None]
  - Multi-organ disorder [None]
  - Death [Fatal]
